FAERS Safety Report 9838262 (Version 1)
Quarter: 2014Q1

REPORT INFORMATION
  Report Type: Spontaneous
  Country: ES (occurrence: ES)
  Receive Date: 20140123
  Receipt Date: 20140123
  Transmission Date: 20141002
  Serious: Yes (Other)
  Sender: FDA-Public Use
  Company Number: ES-ABBVIE-14P-144-1191132-00

PATIENT
  Age: 51 Year
  Sex: Female

DRUGS (1)
  1. HUMIRA [Suspect]
     Indication: RHEUMATOID ARTHRITIS
     Dates: start: 20120117, end: 20131129

REACTIONS (4)
  - Drug specific antibody present [Unknown]
  - Injection site hypersensitivity [Recovering/Resolving]
  - Drug ineffective [Unknown]
  - Injection site reaction [Unknown]
